FAERS Safety Report 17877680 (Version 1)
Quarter: 2020Q2

REPORT INFORMATION
  Report Type: Report from Study
  Country: US (occurrence: US)
  Receive Date: 20200609
  Receipt Date: 20200609
  Transmission Date: 20200714
  Serious: Yes (Other)
  Sender: FDA-Public Use
  Company Number: US-TAIHO ONCOLOGY  INC-EU-2020-01752

PATIENT
  Age: 77 Year
  Sex: Male

DRUGS (1)
  1. LONSURF [Suspect]
     Active Substance: TIPIRACIL HYDROCHLORIDE\TRIFLURIDINE
     Indication: OESOPHAGEAL CARCINOMA
     Dosage: CURRENT CYCLE UNKNOWN, ONGOING
     Route: 048
     Dates: start: 20200506

REACTIONS (5)
  - Fatigue [Not Recovered/Not Resolved]
  - Upper gastrointestinal haemorrhage [Unknown]
  - Pneumonia [Unknown]
  - Atrial fibrillation [Unknown]
  - Malnutrition [Unknown]

NARRATIVE: CASE EVENT DATE: 20200506
